FAERS Safety Report 21532500 (Version 1)
Quarter: 2022Q4

REPORT INFORMATION
  Report Type: Spontaneous
  Country: US (occurrence: US)
  Receive Date: 20221101
  Receipt Date: 20221101
  Transmission Date: 20230113
  Serious: No
  Sender: FDA-Public Use
  Company Number: US-ORGANON-O2210USA001528

PATIENT
  Sex: Male

DRUGS (1)
  1. CLARINEX-D 12 HOUR [Suspect]
     Active Substance: DESLORATADINE\PSEUDOEPHEDRINE SULFATE
     Dosage: ONE TABLET TWICE A DAY
     Route: 048
     Dates: start: 202208

REACTIONS (3)
  - Product availability issue [Unknown]
  - Intentional product misuse [Unknown]
  - Product dose omission issue [Unknown]

NARRATIVE: CASE EVENT DATE: 20220101
